FAERS Safety Report 4299618-9 (Version None)
Quarter: 2004Q1

REPORT INFORMATION
  Report Type: 
  Country: None (occurrence: None)
  Receive Date: 20040217
  Receipt Date: 20040203
  Transmission Date: 20041129
  Serious: Yes (Death, Hospitalization, Other)
  Sender: FDA-Public Use
  Company Number: 2004-00493

PATIENT
  Age: 39 Year
  Sex: Male

DRUGS (2)
  1. DIPHENHYDRAMINE HCL [Suspect]
     Dosage: ORAL
     Route: 048
  2. ACETAMINOPHEN [Concomitant]

REACTIONS (3)
  - GRAND MAL CONVULSION [None]
  - OVERDOSE [None]
  - TACHYCARDIA [None]
